FAERS Safety Report 5738053-0 (Version None)
Quarter: 2008Q2

REPORT INFORMATION
  Report Type: 
  Country: None (occurrence: None)
  Receive Date: 20080509
  Receipt Date: 20080312
  Transmission Date: 20081010
  Serious: Yes (Other)
  Sender: FDA-Public Use
  Company Number: 553998

PATIENT

DRUGS (2)
  1. FUZEON [Suspect]
  2. ANTIRETROVIRAL NOS (ANTIRETROVIRAL NOS) [Concomitant]

REACTIONS (1)
  - PANCREATITIS [None]
